FAERS Safety Report 11637553 (Version 2)
Quarter: 2015Q4

REPORT INFORMATION
  Report Type: Spontaneous
  Country: CZ (occurrence: CZ)
  Receive Date: 20151016
  Receipt Date: 20151023
  Transmission Date: 20160304
  Serious: Yes (Hospitalization)
  Sender: FDA-Public Use
  Company Number: CZ-PFIZER INC-2015349324

PATIENT
  Sex: Male

DRUGS (5)
  1. LANZUL [Concomitant]
     Active Substance: LANSOPRAZOLE
     Dosage: UNK
     Dates: start: 20150127
  2. LYRICA [Suspect]
     Active Substance: PREGABALIN
     Dosage: 150 MG, UNK
  3. COLDREX MAXGRIP C [Concomitant]
     Dosage: UNK
     Dates: start: 20150601
  4. SORBIFER [Concomitant]
     Active Substance: FERROUS SULFATE\FERROUS SULFATE, DRIED
     Dosage: 100 UNK, UNK
     Dates: start: 20150721
  5. ASPIRIN C [Concomitant]
     Dosage: 0 UNK, UNK
     Dates: start: 20150601

REACTIONS (1)
  - Hypertension [Recovered/Resolved]

NARRATIVE: CASE EVENT DATE: 2015
